FAERS Safety Report 13749236 (Version 1)
Quarter: 2017Q3

REPORT INFORMATION
  Report Type: Spontaneous
  Country: US (occurrence: US)
  Receive Date: 20170713
  Receipt Date: 20170713
  Transmission Date: 20171127
  Serious: Yes (Death, Hospitalization)
  Sender: FDA-Public Use
  Company Number: None

PATIENT
  Age: 77 Year
  Sex: Male
  Weight: 88.08 kg

DRUGS (14)
  1. ROPINIROLE. [Concomitant]
     Active Substance: ROPINIROLE
  2. POTASSIUM [Concomitant]
     Active Substance: POTASSIUM
  3. CALCIUM [Concomitant]
     Active Substance: CALCIUM
  4. AMIODARONE TAB 200MG [Suspect]
     Active Substance: AMIODARONE
     Indication: ATRIAL FIBRILLATION
     Dosage: 200MG 2 PILLS 1 TWICE A DAY MOUTH
     Route: 048
     Dates: start: 20150819, end: 20160621
  5. ELIQUIS [Concomitant]
     Active Substance: APIXABAN
  6. LEVOTHYZAPIN [Concomitant]
  7. IRON [Concomitant]
     Active Substance: IRON
  8. NIACIN. [Concomitant]
     Active Substance: NIACIN
  9. FUROSEMIDE. [Concomitant]
     Active Substance: FUROSEMIDE
  10. PROCERA [Concomitant]
     Active Substance: DIETARY SUPPLEMENT
  11. SUPER B COMPLEX [Concomitant]
     Active Substance: CYANOCOBALAMIN\DEXPANTHENOL\NIACINAMIDE\PYRIDOXINE HYDROCHLORIDE\RIBOFLAVIN 5^-PHOSPHATE SODIUM\THIAMINE HYDROCHLORIDE\VITAMIN B COMPLEX
  12. VESICARE [Concomitant]
     Active Substance: SOLIFENACIN SUCCINATE
  13. FLOMAX [Concomitant]
     Active Substance: TAMSULOSIN HYDROCHLORIDE
  14. CENTRUM SILVER [Concomitant]
     Active Substance: MINERALS\VITAMINS

REACTIONS (2)
  - Hepatic failure [None]
  - Product use in unapproved indication [None]

NARRATIVE: CASE EVENT DATE: 20150819
